FAERS Safety Report 4924435-3 (Version None)
Quarter: 2006Q1

REPORT INFORMATION
  Report Type: 
  Country: None (occurrence: None)
  Receive Date: 20060221
  Receipt Date: 20050810
  Transmission Date: 20060701
  Serious: Yes (Hospitalization)
  Sender: FDA-Public Use
  Company Number: 2005114251

PATIENT
  Age: 53 Year
  Sex: Female

DRUGS (4)
  1. PREDNISONE TAB [Suspect]
     Indication: RASH
  2. DEPO-MEDROL [Suspect]
     Indication: ILL-DEFINED DISORDER
  3. DETROL LA [Suspect]
     Indication: ILL-DEFINED DISORDER
  4. EFFEXOR [Concomitant]

REACTIONS (7)
  - ABNORMAL BEHAVIOUR [None]
  - ANTICHOLINERGIC SYNDROME [None]
  - FEELING ABNORMAL [None]
  - PANIC REACTION [None]
  - PARANOIA [None]
  - PAROSMIA [None]
  - PSYCHOTIC DISORDER [None]
